FAERS Safety Report 11394741 (Version 1)
Quarter: 2015Q3

REPORT INFORMATION
  Report Type: Spontaneous
  Country: US (occurrence: None)
  Receive Date: 20150817
  Receipt Date: 20150817
  Transmission Date: 20151125
  Serious: Yes (Life-Threatening)
  Sender: FDA-Public Use
  Company Number: None

PATIENT
  Age: 38 Year
  Sex: Female

DRUGS (5)
  1. MOXIFLOXACIN. [Suspect]
     Active Substance: MOXIFLOXACIN
     Indication: TUBERCULOSIS
     Route: 048
     Dates: start: 20150207, end: 20150814
  2. VITAMIN B-6 [Concomitant]
     Active Substance: PYRIDOXINE
  3. AMIKACIN [Concomitant]
     Active Substance: AMIKACIN
  4. PZA [Concomitant]
     Active Substance: PYRAZINAMIDE
  5. LINEZOLID. [Concomitant]
     Active Substance: LINEZOLID

REACTIONS (9)
  - Asthenia [None]
  - Migraine [None]
  - Cardiac disorder [None]
  - Hypotension [None]
  - Syncope [None]
  - Chest pain [None]
  - Vision blurred [None]
  - Hypoaesthesia [None]
  - Insomnia [None]

NARRATIVE: CASE EVENT DATE: 20150813
